FAERS Safety Report 4752982-6 (Version None)
Quarter: 2005Q3

REPORT INFORMATION
  Report Type: 
  Country: None (occurrence: None)
  Receive Date: 20050825
  Receipt Date: 20050808
  Transmission Date: 20060218
  Serious: Yes (Hospitalization, Disabling)
  Sender: FDA-Public Use
  Company Number: US_990927918

PATIENT
  Age: 82 Year
  Sex: Female
  Weight: 72 kg

DRUGS (10)
  1. HUMALOG [Suspect]
     Indication: DIABETES MELLITUS
     Dosage: 30 U/D AS NEEDED
     Dates: start: 19990101
  2. HUMULIN N [Suspect]
     Indication: DIABETES MELLITUS
     Dosage: 28 U DAY
     Dates: start: 19990101
  3. INSULIN [Suspect]
     Indication: DIABETES MELLITUS
     Dates: end: 19990101
  4. INSULIN [Suspect]
     Indication: DIABETES MELLITUS
  5. HUMULIN R [Suspect]
     Indication: DIABETES MELLITUS
     Dates: start: 19910101
  6. ENALAPRIL [Concomitant]
  7. CARTIA (DILTIAZEM HYDROCHLORIDE) [Concomitant]
  8. SYNTHROID [Concomitant]
  9. LOVASTATIN [Concomitant]
  10. LANTUS [Concomitant]

REACTIONS (14)
  - BALANCE DISORDER [None]
  - BLOOD GLUCOSE DECREASED [None]
  - BODY HEIGHT BELOW NORMAL [None]
  - COUGH [None]
  - FALL [None]
  - HIP FRACTURE [None]
  - HYPERGLYCAEMIA [None]
  - INJECTION SITE DISCOLOURATION [None]
  - INJECTION SITE HAEMORRHAGE [None]
  - INJURY [None]
  - LOSS OF CONSCIOUSNESS [None]
  - NASOPHARYNGITIS [None]
  - PROCEDURAL COMPLICATION [None]
  - THINKING ABNORMAL [None]
